FAERS Safety Report 7360572-4 (Version None)
Quarter: 2011Q1

REPORT INFORMATION
  Report Type: 
  Country: None (occurrence: None)
  Receive Date: 20110318
  Receipt Date: 20110315
  Transmission Date: 20110831
  Serious: Yes (Hospitalization)
  Sender: FDA-Public Use
  Company Number: DE-ELI_LILLY_AND_COMPANY-DE201103004375

PATIENT
  Age: 36 Year
  Sex: Female
  Weight: 60 kg

DRUGS (2)
  1. CYMBALTA [Suspect]
     Dosage: 1800 MG, UNK
  2. CYMBALTA [Suspect]
     Route: 048

REACTIONS (4)
  - RESTLESSNESS [None]
  - OVERDOSE [None]
  - DRUG ABUSE [None]
  - AGGRESSION [None]
